FAERS Safety Report 23460914 (Version 1)
Quarter: 2024Q1

REPORT INFORMATION
  Report Type: Spontaneous
  Country: CN (occurrence: None)
  Receive Date: 20240131
  Receipt Date: 20240131
  Transmission Date: 20240410
  Serious: Yes (Hospitalization, Other)
  Sender: FDA-Public Use
  Company Number: CN-ROCHE-3500455

PATIENT
  Age: 47 Year
  Sex: Male
  Weight: 65 kg

DRUGS (2)
  1. XOFLUZA [Suspect]
     Active Substance: BALOXAVIR MARBOXIL
     Indication: Influenza A virus test positive
     Route: 048
     Dates: start: 20231230, end: 20231230
  2. TAMIFLU [Suspect]
     Active Substance: OSELTAMIVIR PHOSPHATE
     Indication: Influenza A virus test positive
     Route: 048
     Dates: start: 20231226, end: 20231229

REACTIONS (5)
  - Delirium [Not Recovered/Not Resolved]
  - Cerebral ischaemia [Unknown]
  - Cerebral atrophy [Unknown]
  - Sinusitis [Unknown]
  - Mastoiditis [Unknown]

NARRATIVE: CASE EVENT DATE: 20231231
